FAERS Safety Report 4899946-X (Version None)
Quarter: 2006Q1

REPORT INFORMATION
  Report Type: 
  Country: None (occurrence: None)
  Receive Date: 20060131
  Receipt Date: 20060119
  Transmission Date: 20060701
  Serious: Yes (Hospitalization)
  Sender: FDA-Public Use
  Company Number: 2006011672

PATIENT
  Age: 61 Year
  Sex: Female
  Weight: 72.5755 kg

DRUGS (15)
  1. BEXTRA [Suspect]
     Indication: FIBROMYALGIA
     Dosage: 10 MG (10 MG, 1 IN 1 D), ORAL
     Route: 048
     Dates: start: 20020101
  2. NEURONTIN [Suspect]
     Indication: FIBROMYALGIA
     Dates: start: 20020101, end: 20020101
  3. RELAFEN [Suspect]
     Indication: FIBROMYALGIA
     Dates: start: 20050101, end: 20050101
  4. VOLTAREN [Suspect]
     Indication: FIBROMYALGIA
     Dates: start: 20050101, end: 20050101
  5. ATENOLOL [Concomitant]
  6. NORVASC [Concomitant]
  7. COZAAR [Concomitant]
  8. ASPIRIN [Concomitant]
  9. HYDROCHLOROTHIAZIDE [Concomitant]
  10. KLOR-CON [Concomitant]
  11. LORAZEPAM [Concomitant]
  12. CENTRUM SILVER (ASCORBIC ACID, CALCIUM, MINERALS NOS, RETINOL, TOCOPHE [Concomitant]
  13. CALCIUM (CALCIUM) [Concomitant]
  14. FLONASE [Concomitant]
  15. ZYRTEC [Concomitant]

REACTIONS (10)
  - ANGINA PECTORIS [None]
  - BLOOD CHOLESTEROL ABNORMAL [None]
  - CHEST PAIN [None]
  - CONTUSION [None]
  - CORONARY ARTERY OCCLUSION [None]
  - FEELING ABNORMAL [None]
  - INSOMNIA [None]
  - POST PROCEDURAL COMPLICATION [None]
  - SENSATION OF PRESSURE [None]
  - TINNITUS [None]
